FAERS Safety Report 9396819 (Version 1)
Quarter: 2013Q3

REPORT INFORMATION
  Report Type: Spontaneous
  Country: US (occurrence: None)
  Receive Date: 20130710
  Receipt Date: 20130710
  Transmission Date: 20140515
  Serious: Yes (Hospitalization)
  Sender: FDA-Public Use
  Company Number: None

PATIENT
  Age: 64 Year
  Sex: Male
  Weight: 73 kg

DRUGS (1)
  1. TRAMADOL [Suspect]
     Route: 048
     Dates: start: 20090309, end: 20130321

REACTIONS (5)
  - Convulsion [None]
  - Balance disorder [None]
  - Head injury [None]
  - Face injury [None]
  - Swelling [None]
